FAERS Safety Report 17820660 (Version 1)
Quarter: 2020Q2

REPORT INFORMATION
  Report Type: Spontaneous
  Country: RU (occurrence: RU)
  Receive Date: 20200525
  Receipt Date: 20200525
  Transmission Date: 20200714
  Serious: Yes (Other)
  Sender: FDA-Public Use
  Company Number: RU-BAUSCH-BL-2020-015155

PATIENT
  Sex: Female
  Weight: 50 kg

DRUGS (1)
  1. ALFA NORMIX [Suspect]
     Active Substance: RIFAXIMIN
     Indication: PRODUCT USED FOR UNKNOWN INDICATION
     Dosage: 2 TABLETS 2 TIMES A DAY
     Route: 048
     Dates: start: 20200411

REACTIONS (3)
  - Blood pressure abnormal [Unknown]
  - Pulse abnormal [Unknown]
  - Pyrexia [Recovering/Resolving]

NARRATIVE: CASE EVENT DATE: 20200412
